FAERS Safety Report 5648613-3 (Version None)
Quarter: 2008Q1

REPORT INFORMATION
  Report Type: 
  Country: None (occurrence: None)
  Receive Date: 20080303
  Receipt Date: 20080303
  Transmission Date: 20080703
  Serious: Yes (Other)
  Sender: FDA-Public Use
  Company Number: None

PATIENT
  Age: 61 Year
  Sex: Female
  Weight: 48.0813 kg

DRUGS (1)
  1. ELOXATIN [Suspect]
     Indication: COLON CANCER
     Dosage: 90 MG EVERY 2 WEEKS IV
     Route: 042
     Dates: start: 20071114, end: 20080227

REACTIONS (2)
  - FAECAL INCONTINENCE [None]
  - RESPIRATORY ARREST [None]
